FAERS Safety Report 17019931 (Version 2)
Quarter: 2020Q1

REPORT INFORMATION
  Report Type: Spontaneous
  Country: US (occurrence: US)
  Receive Date: 20191112
  Receipt Date: 20200114
  Transmission Date: 20200409
  Serious: No
  Sender: FDA-Public Use
  Company Number: US-BIOGEN-2019BI00804256

PATIENT
  Sex: Female

DRUGS (2)
  1. TYSABRI [Suspect]
     Active Substance: NATALIZUMAB
     Indication: MULTIPLE SCLEROSIS
     Route: 042
     Dates: start: 20100329
  2. TYSABRI [Suspect]
     Active Substance: NATALIZUMAB
     Dosage: ON DATE 05-NOV-2019
     Route: 065

REACTIONS (2)
  - Decreased immune responsiveness [Unknown]
  - Prescribed underdose [Unknown]
